FAERS Safety Report 4774534-4 (Version None)
Quarter: 2005Q3

REPORT INFORMATION
  Report Type: 
  Country: None (occurrence: None)
  Receive Date: 20050919
  Receipt Date: 20050919
  Transmission Date: 20060218
  Serious: Yes (Death)
  Sender: FDA-Public Use
  Company Number: None

PATIENT
  Age: 36 Year
  Sex: Female
  Weight: 43.9989 kg

DRUGS (1)
  1. FENTANYL [Suspect]

REACTIONS (3)
  - CORONARY ARTERY ATHEROSCLEROSIS [None]
  - LOSS OF CONSCIOUSNESS [None]
  - OVERDOSE [None]
